FAERS Safety Report 4953515-1 (Version None)
Quarter: 2006Q1

REPORT INFORMATION
  Report Type: 
  Country: None (occurrence: None)
  Receive Date: 20060324
  Receipt Date: 20060316
  Transmission Date: 20060701
  Serious: Yes (Other)
  Sender: FDA-Public Use
  Company Number: AU-ROCHE-440861

PATIENT
  Age: 92 Year
  Sex: Female

DRUGS (6)
  1. CEFTRIAXONE [Suspect]
     Indication: DRUG USE FOR UNKNOWN INDICATION
     Route: 065
     Dates: start: 20040802, end: 20040804
  2. FERROUS GLUCONATE [Concomitant]
  3. GENTAMICIN SULFATE [Concomitant]
  4. POTASSIUM ASPARTATE [Concomitant]
  5. OMEPRAZOLE [Concomitant]
  6. CARBIDOPA AND LEVODOPA [Concomitant]

REACTIONS (2)
  - BLOOD ALKALINE PHOSPHATASE INCREASED [None]
  - GAMMA-GLUTAMYLTRANSFERASE INCREASED [None]
